FAERS Safety Report 8067073-9 (Version None)
Quarter: 2012Q1

REPORT INFORMATION
  Report Type: 
  Country: None (occurrence: None)
  Receive Date: 20120124
  Receipt Date: 20120118
  Transmission Date: 20120608
  Serious: Yes (Hospitalization)
  Sender: FDA-Public Use
  Company Number: JP-PFIZER INC-2011261656

PATIENT
  Age: 4 Year
  Sex: Male

DRUGS (2)
  1. SOMATROPIN [Suspect]
     Indication: SMALL FOR DATES BABY
     Dosage: 3.6 MG, WEEKLY (6 TIMES/WEEK)
     Dates: start: 20110713, end: 20110716
  2. SOMATROPIN [Suspect]
     Dosage: UNK
     Dates: start: 20110727

REACTIONS (3)
  - GASTROENTERITIS [None]
  - VOMITING [None]
  - HEPATIC FUNCTION ABNORMAL [None]
